FAERS Safety Report 5625896-7 (Version None)
Quarter: 2008Q1

REPORT INFORMATION
  Report Type: 
  Country: None (occurrence: None)
  Receive Date: 20080213
  Receipt Date: 20080213
  Transmission Date: 20080703
  Serious: Yes (Disabling, Other)
  Sender: FDA-Public Use
  Company Number: None

PATIENT
  Age: 70 Year
  Sex: Female
  Weight: 72.5755 kg

DRUGS (12)
  1. BOTOX [Suspect]
     Indication: ARTHRITIS
     Dosage: 1 TIME
     Dates: start: 20071022, end: 20080115
  2. DEPAKOTE [Concomitant]
  3. SYNTHROID [Concomitant]
  4. CALCIUM [Concomitant]
  5. TIAZAC [Concomitant]
  6. ASPIRIN [Concomitant]
  7. ZOCOR [Concomitant]
  8. SALINE NOSE SPRAY [Concomitant]
  9. SALINE EYE DROPS [Concomitant]
  10. NAPROSYN [Concomitant]
  11. FLONASE [Concomitant]
  12. CLARITIN [Concomitant]

REACTIONS (3)
  - DISCOMFORT [None]
  - MUSCULAR WEAKNESS [None]
  - POSTURE ABNORMAL [None]
